FAERS Safety Report 9705065 (Version 1)
Quarter: 2013Q4

REPORT INFORMATION
  Report Type: Spontaneous
  Country: US (occurrence: US)
  Receive Date: 20131122
  Receipt Date: 20131122
  Transmission Date: 20140711
  Serious: Yes (Other)
  Sender: FDA-Public Use
  Company Number: US-BAYER-2013-139063

PATIENT
  Sex: Female

DRUGS (2)
  1. MIRENA [Suspect]
     Dosage: DAILY DOSE 20 ?G
     Route: 015
     Dates: end: 201105
  2. MIRENA [Suspect]
     Dosage: DAILY DOSE 20 ?G
     Route: 015
     Dates: start: 201305

REACTIONS (6)
  - Lower limb fracture [None]
  - Arthralgia [Not Recovered/Not Resolved]
  - Fall [None]
  - Musculoskeletal pain [None]
  - Arthralgia [None]
  - Musculoskeletal pain [Not Recovered/Not Resolved]
